FAERS Safety Report 15250034 (Version 1)
Quarter: 2018Q3

REPORT INFORMATION
  Report Type: Report from Study
  Country: FR (occurrence: FR)
  Receive Date: 20180807
  Receipt Date: 20180807
  Transmission Date: 20181010
  Serious: Yes (Life-Threatening, Other)
  Sender: FDA-Public Use
  Company Number: FR-PFIZER INC-2018313173

PATIENT
  Age: 56 Year
  Sex: Female

DRUGS (2)
  1. CISATRACURIUM BESILATE [Suspect]
     Active Substance: CISATRACURIUM BESYLATE
     Indication: NEUROMUSCULAR BLOCKING THERAPY
  2. ROCURONIUM BROMIDE. [Suspect]
     Active Substance: ROCURONIUM BROMIDE
     Indication: NEUROMUSCULAR BLOCKING THERAPY

REACTIONS (3)
  - Anaphylactic reaction [Recovered/Resolved]
  - Bronchospasm [Recovered/Resolved]
  - Circulatory collapse [Recovered/Resolved]
